FAERS Safety Report 8163534-2 (Version None)
Quarter: 2012Q1

REPORT INFORMATION
  Report Type: 
  Country: None (occurrence: None)
  Receive Date: 20120224
  Receipt Date: 20120217
  Transmission Date: 20120608
  Serious: Yes (Hospitalization)
  Sender: FDA-Public Use
  Company Number: JP-JNJFOC-20111201133

PATIENT
  Sex: Male
  Weight: 74 kg

DRUGS (7)
  1. SIMPONI [Suspect]
     Indication: RHEUMATOID ARTHRITIS
     Route: 058
     Dates: start: 20110116
  2. SIMPONI [Suspect]
     Route: 058
     Dates: start: 20111212
  3. SIMPONI [Suspect]
     Route: 058
     Dates: start: 20111031, end: 20111031
  4. XYZAL [Concomitant]
     Indication: DRUG ERUPTION
     Dates: start: 20111109
  5. PREDNISOLONE [Concomitant]
     Indication: RHEUMATOID ARTHRITIS
     Dates: start: 20030904
  6. FAMOTIDINE [Concomitant]
     Indication: GASTRIC ULCER
     Dates: start: 20090916
  7. VOLTAREN-XR [Concomitant]
     Indication: RHEUMATOID ARTHRITIS

REACTIONS (1)
  - ENCEPHALITIS VIRAL [None]
